FAERS Safety Report 10517443 (Version 1)
Quarter: 2014Q4

REPORT INFORMATION
  Report Type: Spontaneous
  Country: US (occurrence: US)
  Receive Date: 20141014
  Receipt Date: 20141014
  Transmission Date: 20150528
  Serious: Yes (Hospitalization, Other)
  Sender: FDA-Public Use
  Company Number: US-BAUSCH-BL-2014-006466

PATIENT
  Age: 8 Month
  Sex: Female

DRUGS (1)
  1. XENAZINE [Suspect]
     Active Substance: TETRABENAZINE
     Indication: CHOREA
     Dates: start: 20130429

REACTIONS (2)
  - Product use issue [Unknown]
  - Investigation [Recovered/Resolved]

NARRATIVE: CASE EVENT DATE: 20130429
